FAERS Safety Report 7400789-3 (Version None)
Quarter: 2011Q2

REPORT INFORMATION
  Report Type: 
  Country: None (occurrence: None)
  Receive Date: 20110407
  Receipt Date: 20110330
  Transmission Date: 20111010
  Serious: Yes (Hospitalization)
  Sender: FDA-Public Use
  Company Number: B0710369A

PATIENT
  Sex: Female
  Weight: 37 kg

DRUGS (17)
  1. CYCLOSPORINE [Concomitant]
     Indication: IMMUNOSUPPRESSION
     Dosage: 120MG PER DAY
     Route: 065
     Dates: start: 20070904, end: 20071022
  2. ZOVIRAX [Concomitant]
     Dosage: 600MG PER DAY
     Route: 048
     Dates: start: 20070831, end: 20071004
  3. VANCOMYCIN HYDROCHLORIDE [Suspect]
     Dosage: 1.5G PER DAY
     Route: 048
     Dates: start: 20070911, end: 20070921
  4. METHOTREXATE [Concomitant]
     Indication: IMMUNOSUPPRESSION
     Dosage: 15MG PER DAY
     Route: 065
     Dates: start: 20070905, end: 20070910
  5. GASLON N [Concomitant]
     Dosage: 4MG PER DAY
     Route: 048
     Dates: start: 20070831
  6. ALKERAN [Suspect]
     Indication: STEM CELL TRANSPLANT
     Dosage: 40MGM2 PER DAY
     Route: 042
     Dates: start: 20070830, end: 20070831
  7. PRIDOL [Suspect]
     Dosage: 125MG PER DAY
     Route: 042
     Dates: start: 20070922, end: 20070924
  8. MAXIPIME [Concomitant]
     Dosage: 2G PER DAY
     Route: 042
     Dates: start: 20070829, end: 20070901
  9. PRIMPERAN TAB [Concomitant]
     Dosage: 10MG PER DAY
     Dates: start: 20070831, end: 20070901
  10. GANCICLOVIR [Concomitant]
     Dosage: 200MG PER DAY
     Dates: start: 20070831, end: 20070903
  11. CARBENIN [Suspect]
     Dosage: 1G PER DAY
     Route: 042
     Dates: start: 20070901, end: 20070908
  12. GASPORT [Concomitant]
     Dosage: 20MG PER DAY
     Route: 048
     Dates: start: 20070830
  13. SEROTONE [Concomitant]
     Dosage: 10MG PER DAY
     Route: 042
     Dates: start: 20070830, end: 20070902
  14. FLUDARA [Suspect]
     Indication: STEM CELL TRANSPLANT
     Dosage: 30MGM2 PER DAY
     Route: 042
     Dates: start: 20070828, end: 20070902
  15. TARGOCID [Suspect]
     Dosage: 200MG PER DAY
     Route: 042
     Dates: start: 20070910, end: 20070915
  16. VANCOMYCIN [Suspect]
     Dosage: 2G PER DAY
     Route: 042
     Dates: start: 20070915, end: 20070922
  17. URSO 250 [Concomitant]
     Dosage: 600MG PER DAY
     Route: 048
     Dates: start: 20070830

REACTIONS (6)
  - PSEUDOMEMBRANOUS COLITIS [None]
  - THROMBOTIC MICROANGIOPATHY [None]
  - SEPSIS [None]
  - WHITE BLOOD CELL COUNT DECREASED [None]
  - CYTOMEGALOVIRUS INFECTION [None]
  - INTERSTITIAL LUNG DISEASE [None]
